FAERS Safety Report 10024976 (Version 5)
Quarter: 2015Q2

REPORT INFORMATION
  Report Type: Spontaneous
  Country: US (occurrence: US)
  Receive Date: 20140320
  Receipt Date: 20150513
  Transmission Date: 20150821
  Serious: Yes (Hospitalization, Other)
  Sender: FDA-Public Use
  Company Number: US-009507513-1403USA007797

PATIENT
  Sex: Female

DRUGS (4)
  1. FOSAMAX PLUS D [Suspect]
     Active Substance: ALENDRONATE SODIUM\CHOLECALCIFEROL
     Indication: OSTEOPOROSIS
     Dosage: 70 MG, QW
     Route: 048
     Dates: start: 200504, end: 201102
  2. FOSAMAX [Suspect]
     Active Substance: ALENDRONATE SODIUM
     Dosage: 70 MG, QW
     Route: 048
     Dates: start: 2004, end: 200504
  3. ALENDRONATE SODIUM. [Suspect]
     Active Substance: ALENDRONATE SODIUM
     Dosage: 70 MG, QW
     Route: 048
     Dates: start: 201102, end: 201202
  4. FOSAMAX [Suspect]
     Active Substance: ALENDRONATE SODIUM
     Indication: OSTEOPOROSIS
     Dosage: UNK
     Route: 048

REACTIONS (51)
  - Oesophageal operation [Unknown]
  - Urinary tract infection [Unknown]
  - Diabetic neuropathy [Unknown]
  - Intramedullary rod insertion [Unknown]
  - Meniscus injury [Unknown]
  - Tendon disorder [Unknown]
  - Insulin-requiring type 2 diabetes mellitus [Unknown]
  - Appendicectomy [Unknown]
  - Hysterectomy [Unknown]
  - Nausea [Recovered/Resolved]
  - Blood glucose increased [Unknown]
  - Haematoma evacuation [Unknown]
  - Intramedullary rod insertion [Unknown]
  - Depression [Not Recovered/Not Resolved]
  - Osteoarthritis [Unknown]
  - Atrial tachycardia [Unknown]
  - Hypothyroidism [Unknown]
  - Muscle strain [Unknown]
  - Anaemia postoperative [Unknown]
  - Femur fracture [Recovering/Resolving]
  - Wound infection bacterial [Recovering/Resolving]
  - Anxiety [Not Recovered/Not Resolved]
  - Hypotension [Unknown]
  - Hypertension [Unknown]
  - Anaemia [Unknown]
  - Osteoarthritis [Unknown]
  - Decreased appetite [Recovering/Resolving]
  - Haematoma [Unknown]
  - Rotator cuff syndrome [Unknown]
  - Device failure [Unknown]
  - Foot operation [Unknown]
  - Fall [Unknown]
  - Vomiting [Recovered/Resolved]
  - Constipation [Unknown]
  - Internal fixation of fracture [Unknown]
  - Cholecystectomy [Unknown]
  - Abdominal operation [Unknown]
  - Fall [Unknown]
  - Oedema peripheral [Unknown]
  - Femur fracture [Recovered/Resolved]
  - Trigeminal neuralgia [Unknown]
  - Palpitations [Unknown]
  - Periarthritis [Unknown]
  - Meniscus injury [Unknown]
  - Open reduction of fracture [Unknown]
  - Incisional drainage [Unknown]
  - Hypercholesterolaemia [Unknown]
  - Cardiac murmur [Unknown]
  - Compression fracture [Unknown]
  - Localised infection [Unknown]
  - Blood calcium decreased [Unknown]

NARRATIVE: CASE EVENT DATE: 200012
